FAERS Safety Report 7743821-X (Version None)
Quarter: 2011Q3

REPORT INFORMATION
  Report Type: 
  Country: None (occurrence: None)
  Receive Date: 20110912
  Receipt Date: 20110831
  Transmission Date: 20111222
  Serious: Yes (Hospitalization)
  Sender: FDA-Public Use
  Company Number: US-GLAXOSMITHKLINE-A0896987A

PATIENT
  Age: 57 Year
  Sex: Male
  Weight: 119.8 kg

DRUGS (11)
  1. VYTORIN [Concomitant]
  2. GLIPIZIDE [Concomitant]
  3. MOBIC [Concomitant]
  4. GLUCOTROL XL [Concomitant]
  5. ASPIRIN [Concomitant]
  6. VIAGRA [Concomitant]
  7. PLAVIX [Concomitant]
  8. AVANDIA [Suspect]
     Indication: TYPE 2 DIABETES MELLITUS
     Dosage: 8MG PER DAY
     Route: 048
     Dates: start: 20000815, end: 20070919
  9. AVAPRO [Concomitant]
  10. ZOCOR [Concomitant]
  11. GLYCOSIDE [Concomitant]

REACTIONS (3)
  - CEREBROVASCULAR ACCIDENT [None]
  - MYOCARDIAL INFARCTION [None]
  - ARTERIOSCLEROSIS [None]
